FAERS Safety Report 25130784 (Version 1)
Quarter: 2025Q1

REPORT INFORMATION
  Report Type: Spontaneous
  Country: DE (occurrence: DE)
  Receive Date: 20250327
  Receipt Date: 20250327
  Transmission Date: 20250408
  Serious: Yes (Other)
  Sender: NOVARTIS
  Company Number: DE-002147023-NVSC2025DE049554

PATIENT
  Sex: Female

DRUGS (4)
  1. TAFINLAR [Suspect]
     Active Substance: DABRAFENIB MESYLATE
     Indication: Product used for unknown indication
     Route: 065
     Dates: end: 202406
  2. TAFINLAR [Suspect]
     Active Substance: DABRAFENIB MESYLATE
     Route: 065
     Dates: start: 202408
  3. MEKINIST [Suspect]
     Active Substance: TRAMETINIB DIMETHYL SULFOXIDE
     Indication: Product used for unknown indication
     Route: 065
     Dates: end: 202406
  4. MEKINIST [Suspect]
     Active Substance: TRAMETINIB DIMETHYL SULFOXIDE
     Route: 065
     Dates: start: 202408

REACTIONS (1)
  - Metastasis [Unknown]

NARRATIVE: CASE EVENT DATE: 20240801
